FAERS Safety Report 7600744-4 (Version None)
Quarter: 2011Q3

REPORT INFORMATION
  Report Type: 
  Country: None (occurrence: None)
  Receive Date: 20110711
  Receipt Date: 20110705
  Transmission Date: 20111222
  Serious: Yes (Hospitalization, Other)
  Sender: FDA-Public Use
  Company Number: US-PFIZER INC-2011046045

PATIENT
  Sex: Male

DRUGS (2)
  1. SUTENT [Suspect]
     Indication: METASTATIC RENAL CELL CARCINOMA
     Dosage: 50 MG, 1X/DAY X 28 DAYS Q 42 DAYS
     Route: 048
     Dates: start: 20100201, end: 20110510
  2. SUTENT [Suspect]
     Dosage: 37.5 MG, UNK
     Dates: start: 20110614

REACTIONS (2)
  - PNEUMONIA [None]
  - RENAL FAILURE [None]
